FAERS Safety Report 20790213 (Version 5)
Quarter: 2022Q4

REPORT INFORMATION
  Report Type: Spontaneous
  Country: IN (occurrence: IN)
  Receive Date: 20220505
  Receipt Date: 20221006
  Transmission Date: 20230112
  Serious: Yes (Other)
  Sender: FDA-Public Use
  Company Number: IN-PFIZER INC-2019260721

PATIENT
  Age: 87 Year
  Sex: Female

DRUGS (10)
  1. PALBOCICLIB [Suspect]
     Active Substance: PALBOCICLIB
     Indication: Breast cancer female
     Dosage: 75 MG, 1X/DAY
     Route: 048
     Dates: start: 20190617
  2. PALBOCICLIB [Suspect]
     Active Substance: PALBOCICLIB
     Dosage: 100 MG, 1X/DAY
     Route: 048
     Dates: start: 20190817
  3. PALBOCICLIB [Suspect]
     Active Substance: PALBOCICLIB
     Dosage: 75 MG, 1X/DAY (3 WEEKS ON, 1 WEEK OFF)
     Route: 048
     Dates: start: 20201105
  4. PALBOCICLIB [Suspect]
     Active Substance: PALBOCICLIB
     Dosage: 75 MG, 1X/DAY (3 WEEKS ON, 1 WEEK OFF)
     Route: 048
  5. FULVESTRANT [Concomitant]
     Active Substance: FULVESTRANT
     Dosage: 250 MG, IN EACH ILLEGIBLE (TOTAL 500 MG) EVERY 28 DAYS
     Route: 030
  6. XGEVA [Concomitant]
     Active Substance: DENOSUMAB
     Dosage: 120 MG, IN 3 WEEKS
     Route: 058
  7. MAGNESIUM [Concomitant]
     Active Substance: MAGNESIUM
     Dosage: 1500 MG (1 MONTH)
  8. NIFTRAN [Concomitant]
     Dosage: 100 G, 1X/DAY FOR 1 MONTH
     Route: 048
  9. NIFTRAN [Concomitant]
     Dosage: 100 MG
     Route: 048
  10. CALCIUM CARBONATE\CHOLECALCIFEROL [Concomitant]
     Active Substance: CALCIUM CARBONATE\CHOLECALCIFEROL
     Dosage: 500 MG, 2X/DAY
     Route: 048

REACTIONS (11)
  - Platelet count abnormal [Unknown]
  - White blood cell count abnormal [Unknown]
  - Neutrophil count abnormal [Unknown]
  - Dry skin [Unknown]
  - Urinary tract infection [Recovered/Resolved]
  - Full blood count decreased [Unknown]
  - Haemoglobin abnormal [Unknown]
  - Pyrexia [Unknown]
  - Urine analysis abnormal [Unknown]
  - Osteosclerosis [Unknown]
  - Neoplasm progression [Unknown]

NARRATIVE: CASE EVENT DATE: 20210530
